FAERS Safety Report 22236548 (Version 2)
Quarter: 2024Q2

REPORT INFORMATION
  Report Type: Spontaneous
  Country: US (occurrence: None)
  Receive Date: 20230420
  Receipt Date: 20240418
  Transmission Date: 20240715
  Serious: No
  Sender: FDA-Public Use
  Company Number: US-ROCHE-3287615

PATIENT
  Sex: Female
  Weight: 81.72 kg

DRUGS (4)
  1. AVASTIN [Suspect]
     Active Substance: BEVACIZUMAB
     Indication: Neovascular age-related macular degeneration
     Dosage: YES
     Route: 031
  2. EYLEA [Suspect]
     Active Substance: AFLIBERCEPT
     Indication: Product used for unknown indication
     Route: 065
  3. KLONOPIN [Concomitant]
     Active Substance: CLONAZEPAM
     Route: 048
     Dates: start: 2008
  4. TOBRADEX [Concomitant]
     Active Substance: DEXAMETHASONE\TOBRAMYCIN
     Indication: Eye pain
     Dosage: TINY BIT IN EYELID AFTER EYE INJECTIONS ;ONGOING: YES
     Route: 061

REACTIONS (5)
  - Off label use [Unknown]
  - Visual impairment [Not Recovered/Not Resolved]
  - Vitreous floaters [Recovered/Resolved]
  - Injection site pain [Recovered/Resolved]
  - Vertebral column mass [Not Recovered/Not Resolved]
